FAERS Safety Report 13110166 (Version 1)
Quarter: 2017Q1

REPORT INFORMATION
  Report Type: Spontaneous
  Country: US (occurrence: US)
  Receive Date: 20170112
  Receipt Date: 20170112
  Transmission Date: 20170428
  Serious: No
  Sender: FDA-Public Use
  Company Number: US-ROCHE-1101358

PATIENT
  Sex: Male

DRUGS (3)
  1. NTG [Concomitant]
     Active Substance: NITROGLYCERIN
  2. ACTIVASE [Suspect]
     Active Substance: ALTEPLASE
     Indication: ACUTE MYOCARDIAL INFARCTION
     Route: 065
  3. HEPARIN [Concomitant]
     Active Substance: HEPARIN SODIUM

REACTIONS (3)
  - Vision blurred [Unknown]
  - Bradycardia [Unknown]
  - Hyperhidrosis [Unknown]
